FAERS Safety Report 5570774-5 (Version None)
Quarter: 2007Q4

REPORT INFORMATION
  Report Type: 
  Country: None (occurrence: None)
  Receive Date: 20071221
  Receipt Date: 20071211
  Transmission Date: 20080405
  Serious: Yes (Hospitalization, Other)
  Sender: FDA-Public Use
  Company Number: US-ELI_LILLY_AND_COMPANY-US200710000201

PATIENT
  Sex: Male
  Weight: 70.295 kg

DRUGS (9)
  1. FORTEO [Suspect]
     Indication: OSTEOPOROSIS
     Dosage: 20 UG, DAILY (1/D)
     Dates: start: 20070701
  2. MULTI-VITAMIN [Concomitant]
  3. PREDNISONE [Concomitant]
     Dosage: 5 MG, UNK
  4. PREVACID [Concomitant]
     Dosage: 30 MG, DAILY (1/D)
  5. LYRICA [Concomitant]
     Dosage: 50 MG, 2/D
  6. TUMS [Concomitant]
     Dosage: 1000 MG, UNK
  7. ERGOCALCIFEROL [Concomitant]
     Dosage: 50000 U, WEEKLY (1/W)
  8. DEPO-TESTOSTERONE [Concomitant]
     Indication: HYPOGONADISM MALE
     Dosage: 200 MG, EVERY 3 WEEKS
  9. SENNA [Concomitant]

REACTIONS (1)
  - OSTEONECROSIS [None]
